FAERS Safety Report 11003958 (Version 1)
Quarter: 2015Q2

REPORT INFORMATION
  Report Type: Spontaneous
  Country: US (occurrence: None)
  Receive Date: 20150407
  Receipt Date: 20150407
  Transmission Date: 20150821
  Serious: Yes (Hospitalization)
  Sender: FDA-Public Use
  Company Number: FK201501618

PATIENT
  Age: 15 Year
  Sex: Female

DRUGS (11)
  1. LORAZEPAM. [Concomitant]
     Active Substance: LORAZEPAM
  2. FLUOROURACIL (MANUFACTURER UNKNOWN) (FLUOROURACIL) (FLUOROURACIL) [Suspect]
     Active Substance: FLUOROURACIL
     Indication: METASTATIC SQUAMOUS CELL CARCINOMA
  3. GABAPENTIN. [Concomitant]
     Active Substance: GABAPENTIN
  4. METHADONE [Concomitant]
     Active Substance: METHADONE HYDROCHLORIDE
  5. OXYCODONE [Concomitant]
     Active Substance: OXYCODONE
  6. ACETAMINOPHEN (PARACETAMOL) [Concomitant]
     Active Substance: ACETAMINOPHEN
  7. LIDOCAINE. [Concomitant]
     Active Substance: LIDOCAINE
  8. PERCOCET [Suspect]
     Active Substance: ACETAMINOPHEN\OXYCODONE HYDROCHLORIDE
  9. HYDROMORPHONE [Concomitant]
     Active Substance: HYDROMORPHONE
  10. FENTANYL. [Concomitant]
     Active Substance: FENTANYL
  11. DIAZEPAM. [Concomitant]
     Active Substance: DIAZEPAM

REACTIONS (27)
  - Inadequate analgesia [None]
  - Back pain [None]
  - Somnolence [None]
  - Neutropenia [None]
  - Haematocrit decreased [None]
  - Anal squamous cell carcinoma [None]
  - Malignant neoplasm progression [None]
  - Vulvar erosion [None]
  - Anal erosion [None]
  - Skin exfoliation [None]
  - Groin pain [None]
  - Pain in extremity [None]
  - Arthralgia [None]
  - Vomiting [None]
  - Cognitive disorder [None]
  - Vulval ulceration [None]
  - Urinary retention [None]
  - Urethral disorder [None]
  - Nausea [None]
  - Anal ulcer [None]
  - Hallucination [None]
  - Treatment failure [None]
  - Urethral ulcer [None]
  - Sedation [None]
  - Poor venous access [None]
  - Adverse drug reaction [None]
  - Abnormal dreams [None]
